FAERS Safety Report 5896398-8 (Version None)
Quarter: 2008Q3

REPORT INFORMATION
  Report Type: 
  Country: None (occurrence: None)
  Receive Date: 20080924
  Receipt Date: 20070529
  Transmission Date: 20090109
  Serious: No
  Sender: FDA-Public Use
  Company Number: US-BAYER-200711654BWH

PATIENT
  Sex: Female

DRUGS (3)
  1. AVELOX [Suspect]
     Indication: DRUG USE FOR UNKNOWN INDICATION
     Dosage: TOTAL DAILY DOSE: 400 MG  UNIT DOSE: 400 MG
     Route: 048
     Dates: start: 20070501
  2. ADVAIR DISKUS 100/50 [Concomitant]
     Indication: DYSPNOEA
  3. SINGULAIR [Concomitant]
     Indication: DYSPNOEA

REACTIONS (5)
  - DIARRHOEA [None]
  - DIZZINESS [None]
  - NAUSEA [None]
  - NERVOUSNESS [None]
  - POLLAKIURIA [None]
